FAERS Safety Report 7458369-X (Version None)
Quarter: 2011Q2

REPORT INFORMATION
  Report Type: 
  Country: None (occurrence: None)
  Receive Date: 20110504
  Receipt Date: 20110427
  Transmission Date: 20111010
  Serious: Yes (Hospitalization)
  Sender: FDA-Public Use
  Company Number: A0899072A

PATIENT
  Sex: Male

DRUGS (2)
  1. AVANDIA [Suspect]
     Dosage: 4MG TWICE PER DAY
     Route: 065
  2. ROSIGLITAZONE MALEATE [Suspect]
     Dosage: 4MG THREE TIMES PER DAY
     Route: 048
     Dates: end: 20100928

REACTIONS (1)
  - MYOCARDIAL INFARCTION [None]
